FAERS Safety Report 23924405 (Version 7)
Quarter: 2025Q3

REPORT INFORMATION
  Report Type: Report from Study
  Country: CA (occurrence: CA)
  Receive Date: 20240531
  Receipt Date: 20250926
  Transmission Date: 20251021
  Serious: Yes (Life-Threatening, Hospitalization, Other)
  Sender: TAKEDA
  Company Number: CA-TAKEDA-2024TUS051367

PATIENT
  Age: 77 Year
  Sex: Male

DRUGS (11)
  1. VEDOLIZUMAB [Suspect]
     Active Substance: VEDOLIZUMAB
     Indication: Crohn^s disease
  2. VEDOLIZUMAB [Suspect]
     Active Substance: VEDOLIZUMAB
  3. VEDOLIZUMAB [Suspect]
     Active Substance: VEDOLIZUMAB
  4. VEDOLIZUMAB [Suspect]
     Active Substance: VEDOLIZUMAB
  5. VEDOLIZUMAB [Suspect]
     Active Substance: VEDOLIZUMAB
  6. PENTASA [Concomitant]
     Active Substance: MESALAMINE
     Dosage: 3000 MILLIGRAM, QD
  7. CHOLESTYRAMINE [Concomitant]
     Active Substance: CHOLESTYRAMINE
     Dosage: 8 GRAM, QD
  8. GOSERELIN [Concomitant]
     Active Substance: GOSERELIN
  9. GABAPENTIN [Concomitant]
     Active Substance: GABAPENTIN
  10. RIVAROXABAN [Concomitant]
     Active Substance: RIVAROXABAN
  11. COLESEVELAM [Concomitant]
     Active Substance: COLESEVELAM
     Dosage: UNK, QD

REACTIONS (10)
  - Hepatic cirrhosis [Not Recovered/Not Resolved]
  - Portal vein thrombosis [Not Recovered/Not Resolved]
  - Prostate cancer [Unknown]
  - Abdominal pain [Recovering/Resolving]
  - Social problem [Unknown]
  - Diarrhoea [Unknown]
  - Abdominal mass [Unknown]
  - Malaise [Unknown]
  - Weight decreased [Recovering/Resolving]
  - Asthenia [Recovering/Resolving]

NARRATIVE: CASE EVENT DATE: 20250811
